FAERS Safety Report 10284412 (Version 1)
Quarter: 2014Q3

REPORT INFORMATION
  Report Type: Spontaneous
  Country: FR (occurrence: FR)
  Receive Date: 20140708
  Receipt Date: 20140708
  Transmission Date: 20150326
  Serious: Yes (Hospitalization)
  Sender: FDA-Public Use
  Company Number: FR-SA-2014SA085759

PATIENT
  Age: 81 Year
  Sex: Female
  Weight: 50 kg

DRUGS (9)
  1. DAFALGAN CODEINE [Concomitant]
     Active Substance: ACETAMINOPHEN\CODEINE PHOSPHATE
     Route: 048
  2. TEMERIT [Concomitant]
     Active Substance: NEBIVOLOL
     Route: 048
  3. AMAREL [Suspect]
     Active Substance: GLIMEPIRIDE
     Indication: PRODUCT USED FOR UNKNOWN INDICATION
     Route: 048
     Dates: start: 201212, end: 2013
  4. ADARTREL [Suspect]
     Active Substance: ROPINIROLE
     Indication: RESTLESS LEGS SYNDROME
     Route: 048
  5. XANAX [Concomitant]
     Active Substance: ALPRAZOLAM
     Route: 048
  6. XYZALL [Concomitant]
     Active Substance: LEVOCETIRIZINE DIHYDROCHLORIDE
     Route: 048
  7. NOCTAMIDE [Concomitant]
     Active Substance: LORMETAZEPAM
     Route: 048
  8. PLAVIX [Concomitant]
     Active Substance: CLOPIDOGREL BISULFATE
     Route: 048
  9. INEXIUM [Concomitant]
     Active Substance: ESOMEPRAZOLE
     Route: 048

REACTIONS (4)
  - Hypoglycaemia [Unknown]
  - Fall [Unknown]
  - Femoral neck fracture [Unknown]
  - Drug dispensing error [Unknown]

NARRATIVE: CASE EVENT DATE: 20121208
